FAERS Safety Report 6972681-X (Version None)
Quarter: 2010Q3

REPORT INFORMATION
  Report Type: 
  Country: None (occurrence: None)
  Receive Date: 20100909
  Receipt Date: 20100223
  Transmission Date: 20110219
  Serious: No
  Sender: FDA-Public Use
  Company Number: US-KINGPHARMUSA00001-K201000222

PATIENT
  Sex: Female
  Weight: 64.399 kg

DRUGS (8)
  1. CYTOMEL [Suspect]
     Indication: HYPOTHYROIDISM
     Dosage: 75 MCG, QD
     Dates: start: 20091227, end: 20100101
  2. CYTOMEL [Suspect]
     Dosage: 100 MCG, QD
     Dates: start: 20100101, end: 20100201
  3. CYTOMEL [Suspect]
     Dosage: 75 MCG, QD
     Dates: start: 20100201, end: 20100201
  4. CYTOMEL [Suspect]
     Dosage: 50 MCG, QD
     Dates: start: 20100223
  5. CAFFEINE [Suspect]
     Dosage: UNK
  6. LEVONORGESTREL + ETHINYL ESTRADIOL [Concomitant]
     Indication: CONTRACEPTION
  7. KLONOPIN [Concomitant]
     Indication: ANXIETY
  8. WELLBUTRIN [Concomitant]
     Indication: DEPRESSION

REACTIONS (8)
  - BLOOD THYROID STIMULATING HORMONE DECREASED [None]
  - DRUG INEFFECTIVE [None]
  - HEART RATE INCREASED [None]
  - HYPERTHYROIDISM [None]
  - HYPOTHYROIDISM [None]
  - TREMOR [None]
  - TRI-IODOTHYRONINE INCREASED [None]
  - VIRAL INFECTION [None]
